FAERS Safety Report 12960317 (Version 1)
Quarter: 2016Q4

REPORT INFORMATION
  Report Type: Spontaneous
  Country: US (occurrence: US)
  Receive Date: 20161121
  Receipt Date: 20161121
  Transmission Date: 20170207
  Serious: No
  Sender: FDA-Public Use
  Company Number: US-009507513-1611USA001461

PATIENT

DRUGS (1)
  1. BELSOMRA [Suspect]
     Active Substance: SUVOREXANT
     Route: 065

REACTIONS (3)
  - Feeling abnormal [Unknown]
  - Drug ineffective [Unknown]
  - Insomnia [Unknown]
